FAERS Safety Report 21257871 (Version 1)
Quarter: 2022Q3

REPORT INFORMATION
  Report Type: Spontaneous
  Country: NL (occurrence: NL)
  Receive Date: 20220826
  Receipt Date: 20220826
  Transmission Date: 20221027
  Serious: Yes (Death, Hospitalization)
  Sender: FDA-Public Use
  Company Number: NL-NOVARTISPH-NVSC2022NL191043

PATIENT
  Age: 8 Decade
  Sex: Male

DRUGS (3)
  1. PREDNISOLONE [Suspect]
     Active Substance: PREDNISOLONE
     Indication: Uveitis
     Dosage: 1 MG/KG
     Route: 065
  2. CEFUROXIME [Suspect]
     Active Substance: CEFUROXIME
     Indication: Pneumocystis jirovecii pneumonia
     Dosage: UNK
     Route: 065
  3. COTRIMOXAZOLE [Suspect]
     Active Substance: SULFAMETHOXAZOLE\TRIMETHOPRIM
     Indication: Pneumocystis jirovecii pneumonia
     Dosage: UNK
     Route: 065

REACTIONS (1)
  - Drug ineffective [Fatal]
